FAERS Safety Report 5531777-X (Version None)
Quarter: 2007Q4

REPORT INFORMATION
  Report Type: 
  Country: None (occurrence: None)
  Receive Date: 20071203
  Receipt Date: 20071126
  Transmission Date: 20080405
  Serious: Yes (Life-Threatening)
  Sender: FDA-Public Use
  Company Number: NO-ASTRAZENECA-2007SE05547

PATIENT
  Age: 24653 Day
  Sex: Female
  Weight: 61 kg

DRUGS (4)
  1. NAROPIN [Suspect]
     Indication: POSTOPERATIVE ANALGESIA
     Dosage: 4.9 MG/KG
     Route: 059
     Dates: start: 20071015, end: 20071015
  2. MARCAINE [Suspect]
     Indication: SPINAL ANAESTHESIA
     Dosage: IN COMBINATION WITH FENTANYL
     Route: 037
     Dates: start: 20071015, end: 20071015
  3. FENTANYL [Suspect]
     Indication: SPINAL ANAESTHESIA
     Dosage: GIVEN IN COMBINATION WITH MARCAIN
     Route: 037
     Dates: start: 20071015, end: 20071015
  4. ACETAMINOPHEN [Concomitant]

REACTIONS (3)
  - ATRIOVENTRICULAR BLOCK COMPLETE [None]
  - CARDIAC ARREST [None]
  - OVERDOSE [None]
